FAERS Safety Report 12804663 (Version 2)
Quarter: 2016Q4

REPORT INFORMATION
  Report Type: Spontaneous
  Country: US (occurrence: US)
  Receive Date: 20161003
  Receipt Date: 20161222
  Transmission Date: 20170207
  Serious: No
  Sender: FDA-Public Use
  Company Number: US-GLAXOSMITHKLINE-US2016142449

PATIENT
  Sex: Male

DRUGS (1)
  1. FLOVENT DISKUS [Suspect]
     Active Substance: FLUTICASONE PROPIONATE
     Indication: EOSINOPHILIC OESOPHAGITIS
     Dosage: 1 TO 2 SWALLOWS
     Route: 048

REACTIONS (4)
  - Asthma [Unknown]
  - Off label use [Unknown]
  - Product use issue [Unknown]
  - Incorrect route of drug administration [Unknown]
